FAERS Safety Report 10014500 (Version 2)
Quarter: 2014Q3

REPORT INFORMATION
  Report Type: Not Available
  Country: AU (occurrence: AU)
  Receive Date: 20140317
  Receipt Date: 20140908
  Transmission Date: 20150326
  Serious: Yes (Death)
  Sender: FDA-Public Use
  Company Number: AU-NAPPMUNDI-GBR-2014-0017328

PATIENT
  Age: 88 Year
  Sex: Female

DRUGS (2)
  1. MORPHINE SULFATE. [Suspect]
     Active Substance: MORPHINE SULFATE
     Indication: ANALGESIC THERAPY
     Dosage: UNK
     Route: 030
     Dates: start: 20120317
  2. MORPHINE SULFATE. [Suspect]
     Active Substance: MORPHINE SULFATE
     Indication: ANALGESIC THERAPY
     Dosage: 30 MG, UNK
     Route: 030
     Dates: start: 20120317

REACTIONS (7)
  - Toxicity to various agents [Fatal]
  - Somnolence [Fatal]
  - Drug prescribing error [Fatal]
  - Malaise [Fatal]
  - Pallor [Fatal]
  - Vomiting [Fatal]
  - Tremor [Fatal]

NARRATIVE: CASE EVENT DATE: 20120317
